FAERS Safety Report 15015135 (Version 3)
Quarter: 2018Q4

REPORT INFORMATION
  Report Type: Report from Study
  Country: US (occurrence: US)
  Receive Date: 20180615
  Receipt Date: 20181109
  Transmission Date: 20190204
  Serious: Yes (Other)
  Sender: FDA-Public Use
  Company Number: US-ROCHE-2132483

PATIENT
  Age: 76 Year
  Sex: Female
  Weight: 65.38 kg

DRUGS (8)
  1. ACTEMRA [Suspect]
     Active Substance: TOCILIZUMAB
     Route: 058
     Dates: start: 201810
  2. ACTEMRA [Suspect]
     Active Substance: TOCILIZUMAB
     Indication: TEMPORAL ARTERITIS
     Route: 058
     Dates: start: 201806, end: 201810
  3. PREDNISONE. [Concomitant]
     Active Substance: PREDNISONE
     Dosage: FOR LAST 6 MONTHS, DISCONTINUED
     Route: 048
  4. ZOLEDRONIC [Concomitant]
     Active Substance: ZOLEDRONIC ACID
  5. ACTEMRA [Suspect]
     Active Substance: TOCILIZUMAB
     Indication: TEMPORAL ARTERITIS
     Route: 058
     Dates: start: 201707, end: 201806
  6. PREDNISONE. [Concomitant]
     Active Substance: PREDNISONE
     Indication: TEMPORAL ARTERITIS
     Dosage: FOR 12 MONTHS, DISCONTINUED
     Route: 048
     Dates: start: 201202
  7. PREDNISONE. [Concomitant]
     Active Substance: PREDNISONE
     Route: 048
  8. PREDNISONE. [Concomitant]
     Active Substance: PREDNISONE
     Route: 048
     Dates: start: 201705, end: 201707

REACTIONS (9)
  - Cough [Unknown]
  - Insomnia [Unknown]
  - Alopecia [Unknown]
  - Night sweats [Not Recovered/Not Resolved]
  - Visual impairment [Unknown]
  - Biliary dilatation [Not Recovered/Not Resolved]
  - Myalgia [Unknown]
  - Neoplasm malignant [Unknown]
  - Pyrexia [Unknown]

NARRATIVE: CASE EVENT DATE: 201806
